FAERS Safety Report 5295837-3 (Version None)
Quarter: 2007Q2

REPORT INFORMATION
  Report Type: 
  Country: None (occurrence: None)
  Receive Date: 20070413
  Receipt Date: 20070403
  Transmission Date: 20071010
  Serious: Yes (Hospitalization)
  Sender: FDA-Public Use
  Company Number: US-KINGPHARMUSA00001-K200700410

PATIENT

DRUGS (3)
  1. SONATA [Suspect]
     Dosage: 140 MG, (14 CAPSULES),
     Route: 048
     Dates: start: 20070330, end: 20070330
  2. AMLODIPINE [Suspect]
     Dosage: 1000 MG, (100 TABLETS), UNK
     Route: 048
     Dates: start: 20070330, end: 20070330
  3. LORAZEPAM [Suspect]
     Dosage: 50 MG, 50 TABLETS
     Route: 048
     Dates: start: 20070330, end: 20070330

REACTIONS (5)
  - FATIGUE [None]
  - HYPOTENSION [None]
  - MULTIPLE DRUG OVERDOSE INTENTIONAL [None]
  - SUICIDE ATTEMPT [None]
  - TACHYCARDIA [None]
